FAERS Safety Report 5501922-0 (Version None)
Quarter: 2007Q4

REPORT INFORMATION
  Report Type: 
  Country: None (occurrence: None)
  Receive Date: 20071030
  Receipt Date: 20071025
  Transmission Date: 20080405
  Serious: Yes (Life-Threatening, Hospitalization, Other)
  Sender: FDA-Public Use
  Company Number: PHBS2007JP17921

PATIENT
  Age: 77 Year
  Sex: Female

DRUGS (6)
  1. AMARYL [Concomitant]
     Dosage: 3 MG/D
     Route: 048
     Dates: start: 20070925, end: 20071008
  2. TENORMIN [Concomitant]
     Dosage: 25 MG/D
     Route: 048
     Dates: end: 20071008
  3. MICARDIS [Concomitant]
     Dosage: 40 MG/D
     Route: 048
     Dates: end: 20071008
  4. DOXAZOSIN MESYLATE [Concomitant]
     Dosage: 1 MG/D
     Route: 048
     Dates: end: 20071008
  5. ZOLPIDEM [Concomitant]
     Dosage: 5 MG/D
     Route: 048
     Dates: end: 20071008
  6. GLEEVEC [Suspect]
     Indication: ACUTE LYMPHOCYTIC LEUKAEMIA
     Dosage: 400 MG/D
     Route: 048
     Dates: start: 20070925, end: 20071008

REACTIONS (2)
  - ALTERED STATE OF CONSCIOUSNESS [None]
  - HYPOGLYCAEMIA [None]
